FAERS Safety Report 11481680 (Version 2)
Quarter: 2015Q3

REPORT INFORMATION
  Report Type: Spontaneous
  Country: US (occurrence: US)
  Receive Date: 20150903
  Receipt Date: 20150903
  Transmission Date: 20151125
  Serious: No
  Sender: FDA-Public Use
  Company Number: US-ELI_LILLY_AND_COMPANY-US201203005571

PATIENT
  Age: 51 Year
  Sex: Female

DRUGS (5)
  1. SYNTHROID [Concomitant]
     Active Substance: LEVOTHYROXINE SODIUM
  2. METHOTREXATE [Concomitant]
     Active Substance: METHOTREXATE
  3. CYMBALTA [Suspect]
     Active Substance: DULOXETINE HYDROCHLORIDE
     Dosage: 60 MG, QD
     Dates: start: 1999, end: 201202
  4. HUMIRA [Concomitant]
     Active Substance: ADALIMUMAB
  5. VITAMIN B12 [Concomitant]
     Active Substance: CYANOCOBALAMIN

REACTIONS (7)
  - Memory impairment [Unknown]
  - Tension [Unknown]
  - Drug withdrawal syndrome [Not Recovered/Not Resolved]
  - Irritability [Unknown]
  - Visual impairment [Unknown]
  - Inappropriate schedule of drug administration [Recovered/Resolved]
  - Tremor [Unknown]
